FAERS Safety Report 10649574 (Version 1)
Quarter: 2014Q4

REPORT INFORMATION
  Report Type: Spontaneous
  Country: US (occurrence: US)
  Receive Date: 20141212
  Receipt Date: 20141212
  Transmission Date: 20150529
  Serious: No
  Sender: FDA-Public Use
  Company Number: US-ASTRAZENECA-2014SE92702

PATIENT
  Age: 84 Year
  Sex: Female
  Weight: 74.8 kg

DRUGS (9)
  1. NEXIUM [Suspect]
     Active Substance: ESOMEPRAZOLE MAGNESIUM
     Indication: SPINAL OSTEOARTHRITIS
     Route: 048
     Dates: start: 201405, end: 20141117
  2. NEXIUM [Suspect]
     Active Substance: ESOMEPRAZOLE MAGNESIUM
     Indication: ARTHROPATHY
     Route: 048
     Dates: start: 201405, end: 20141117
  3. OMEPRAZOLE. [Suspect]
     Active Substance: OMEPRAZOLE
     Indication: BURSITIS
     Route: 048
     Dates: start: 20140520
  4. MOBIC [Concomitant]
     Active Substance: MELOXICAM
  5. NEXIUM [Suspect]
     Active Substance: ESOMEPRAZOLE MAGNESIUM
     Indication: MUSCULOSKELETAL DISCOMFORT
     Route: 048
     Dates: start: 201405, end: 20141117
  6. NEXIUM [Suspect]
     Active Substance: ESOMEPRAZOLE MAGNESIUM
     Indication: GASTRIC DISORDER
     Route: 048
     Dates: start: 20141118
  7. NEXIUM [Suspect]
     Active Substance: ESOMEPRAZOLE MAGNESIUM
     Indication: GASTROOESOPHAGEAL REFLUX DISEASE
     Route: 048
     Dates: start: 20141118
  8. OMEPRAZOLE. [Suspect]
     Active Substance: OMEPRAZOLE
     Indication: ABDOMINAL DISCOMFORT
     Route: 048
     Dates: start: 20140520
  9. NEXIUM [Suspect]
     Active Substance: ESOMEPRAZOLE MAGNESIUM
     Indication: SPINAL OSTEOARTHRITIS
     Route: 048
     Dates: start: 201405, end: 20141117

REACTIONS (8)
  - Epigastric discomfort [Unknown]
  - Abdominal discomfort [Unknown]
  - Intentional product misuse [Unknown]
  - Spinal pain [Unknown]
  - Drug ineffective [Unknown]
  - Bursitis [Not Recovered/Not Resolved]
  - Musculoskeletal discomfort [Unknown]
  - Spinal osteoarthritis [Unknown]

NARRATIVE: CASE EVENT DATE: 2013
